FAERS Safety Report 17290561 (Version 1)
Quarter: 2020Q1

REPORT INFORMATION
  Report Type: Spontaneous
  Country: IN (occurrence: IN)
  Receive Date: 20200121
  Receipt Date: 20200121
  Transmission Date: 20200409
  Serious: Yes (Other)
  Sender: FDA-Public Use
  Company Number: IN-MACLEODS PHARMACEUTICALS US LTD-MAC2020024809

PATIENT

DRUGS (1)
  1. TRAMADOL 50 MG TABLETS [Suspect]
     Active Substance: TRAMADOL
     Indication: DRUG DEPENDENCE
     Dosage: 50 MILLIGRAM, 5-10 TABLETS PER DAY
     Route: 048

REACTIONS (2)
  - Rebound psychosis [Recovered/Resolved]
  - Hallucination, auditory [Recovered/Resolved]
